FAERS Safety Report 18628012 (Version 2)
Quarter: 2020Q4

REPORT INFORMATION
  Report Type: Not Available
  Country: US (occurrence: None)
  Receive Date: 20201217
  Receipt Date: 20201221
  Transmission Date: 20210114
  Serious: Yes (Other)
  Sender: FDA-Public Use
  Company Number: US-AKORN-158287

PATIENT
  Sex: Female

DRUGS (1)
  1. THERATEARS LUBRICANT [Suspect]
     Active Substance: CARBOXYMETHYLCELLULOSE SODIUM

REACTIONS (4)
  - Foreign body in eye [Recovered/Resolved]
  - Eye irritation [None]
  - Eye pain [Recovered/Resolved]
  - Superficial injury of eye [None]

NARRATIVE: CASE EVENT DATE: 20201213
